FAERS Safety Report 8841019 (Version 2)
Quarter: 2015Q1

REPORT INFORMATION
  Report Type: Report from Study
  Country: US (occurrence: US)
  Receive Date: 20121015
  Receipt Date: 20150127
  Transmission Date: 20150721
  Serious: Yes (Hospitalization)
  Sender: FDA-Public Use
  Company Number: US-ROCHE-1138922

PATIENT
  Sex: Male
  Weight: 54.2 kg

DRUGS (5)
  1. RITALIN [Concomitant]
     Active Substance: METHYLPHENIDATE HYDROCHLORIDE
     Route: 065
  2. PROTROPIN [Suspect]
     Active Substance: SOMATREM
     Indication: GROWTH HORMONE DEFICIENCY
     Route: 058
     Dates: start: 199407
  3. RITALIN [Concomitant]
     Active Substance: METHYLPHENIDATE HYDROCHLORIDE
     Route: 065
  4. RISPERDAL [Concomitant]
     Active Substance: RISPERIDONE
     Dosage: 1 TABLET FOR 3 NIGHTS
     Route: 065
  5. PROTROPIN [Suspect]
     Active Substance: SOMATREM
     Indication: DWARFISM
     Route: 058
     Dates: start: 19900730

REACTIONS (3)
  - Mental disorder [Unknown]
  - Drug dose omission [Unknown]
  - Acne [Unknown]
